FAERS Safety Report 21200015 (Version 1)
Quarter: 2022Q3

REPORT INFORMATION
  Report Type: Spontaneous
  Country: US (occurrence: None)
  Receive Date: 20220811
  Receipt Date: 20220811
  Transmission Date: 20221026
  Serious: No
  Sender: FDA-Public Use
  Company Number: 2022A257649

PATIENT
  Sex: Male
  Weight: 80.7 kg

DRUGS (1)
  1. CALQUENCE [Suspect]
     Active Substance: ACALABRUTINIB
     Indication: Chronic lymphocytic leukaemia
     Route: 048
     Dates: start: 20220407

REACTIONS (4)
  - Arthralgia [Unknown]
  - Arthralgia [Unknown]
  - Mass [Unknown]
  - Musculoskeletal discomfort [Unknown]
